FAERS Safety Report 4826426-X (Version None)
Quarter: 2005Q4

REPORT INFORMATION
  Report Type: 
  Country: None (occurrence: None)
  Receive Date: 20051014
  Receipt Date: 20050817
  Transmission Date: 20060501
  Serious: No
  Sender: FDA-Public Use
  Company Number: 2005SP002381

PATIENT
  Age: 50 Year
  Sex: Male
  Weight: 88.4514 kg

DRUGS (4)
  1. LUNESTA [Suspect]
     Indication: TINNITUS
     Dosage: 3 MG;HS;ORAL ; 6 MG;HS;ORAL
     Route: 048
     Dates: start: 20050101
  2. LUNESTA [Suspect]
     Indication: TINNITUS
     Dosage: 3 MG;HS;ORAL ; 6 MG;HS;ORAL
     Route: 048
     Dates: start: 20050101
  3. DEPAKOTE [Concomitant]
  4. SEROQUEL [Concomitant]

REACTIONS (3)
  - DRUG EFFECT DECREASED [None]
  - FATIGUE [None]
  - SOMNOLENCE [None]
